FAERS Safety Report 6982074-7 (Version None)
Quarter: 2010Q3

REPORT INFORMATION
  Report Type: 
  Country: None (occurrence: None)
  Receive Date: 20100909
  Receipt Date: 20100824
  Transmission Date: 20110219
  Serious: Yes (Other)
  Sender: FDA-Public Use
  Company Number: FKO201000364

PATIENT
  Age: 43 Year
  Sex: Male

DRUGS (3)
  1. CISPLATIN [Suspect]
     Indication: TESTIS CANCER
     Dosage: (20 MG/M2, FIOR 5 DAYS)
  2. BLEOMYCIN SULFATE [Suspect]
     Indication: TESTIS CANCER
     Dosage: (100 MG/M2, FOR 5 DAYS)
  3. ETOPOSIDE [Suspect]
     Indication: TESTIS CANCER
     Dosage: (30 MG, FOR 2 DAYS)

REACTIONS (3)
  - BLOOD PRESSURE DECREASED [None]
  - CORONARY ARTERY OCCLUSION [None]
  - MYOCARDIAL INFARCTION [None]
